FAERS Safety Report 9284994 (Version 1)
Quarter: 2013Q2

REPORT INFORMATION
  Report Type: Report from Study
  Country: BR (occurrence: BR)
  Receive Date: 20130513
  Receipt Date: 20130513
  Transmission Date: 20140414
  Serious: Yes (Other)
  Sender: FDA-Public Use
  Company Number: PHHY2013BR046636

PATIENT
  Sex: Female
  Weight: 76 kg

DRUGS (4)
  1. SANDOSTATIN LAR [Suspect]
     Indication: ACROMEGALY
     Dosage: 2 DF, UNK
     Route: 030
     Dates: start: 2007
  2. DOSTINEX [Concomitant]
     Dosage: 3 DF, ON MONDAY
     Dates: start: 2007
  3. DOSTINEX [Concomitant]
     Dosage: 3 DF, ON THRUSDAY
     Dates: start: 2007
  4. PREDNISONE [Concomitant]
     Dosage: 5 MG, UNK
     Dates: start: 2004

REACTIONS (3)
  - Diabetes mellitus [Unknown]
  - Thyroid disorder [Unknown]
  - Blood test abnormal [Unknown]
